FAERS Safety Report 13414659 (Version 2)
Quarter: 2017Q2

REPORT INFORMATION
  Report Type: Spontaneous
  Country: CN (occurrence: CN)
  Receive Date: 20170407
  Receipt Date: 20170420
  Transmission Date: 20170830
  Serious: Yes (Hospitalization, Other)
  Sender: FDA-Public Use
  Company Number: CN-GLAXOSMITHKLINE-CN2017GSK047033

PATIENT
  Age: 85 Year
  Sex: Female

DRUGS (3)
  1. IRBESARTAN. [Concomitant]
     Active Substance: IRBESARTAN
     Indication: HYPERTENSION
  2. SERETIDE [Suspect]
     Active Substance: FLUTICASONE PROPIONATE\SALMETEROL XINAFOATE
     Indication: BRONCHITIS CHRONIC
     Dosage: 1 PUFF(S), QD
     Route: 055
  3. LANDI TABLETS (AMLODIPINE BESYLATE) [Concomitant]
     Indication: HYPERTENSION

REACTIONS (7)
  - Product use in unapproved indication [Unknown]
  - Cor pulmonale [Unknown]
  - Rib fracture [Recovered/Resolved]
  - Bronchitis [Recovering/Resolving]
  - Hypertension [Unknown]
  - Oral candidiasis [Recovering/Resolving]
  - Osteoporosis [Not Recovered/Not Resolved]
